FAERS Safety Report 9255290 (Version 1)
Quarter: 2013Q1

REPORT INFORMATION
  Report Type: Spontaneous
  Country: US (occurrence: None)
  Receive Date: 20121203
  Receipt Date: 20121203
  Transmission Date: 20140127
  Serious: Yes (Life-Threatening, Hospitalization, Other)
  Sender: FDA-Public Use
  Company Number: 2012SP029447

PATIENT
  Age: 31 Year
  Sex: Female

DRUGS (4)
  1. NUVARING (ETONOGESTREL (+) ETHINYL ESTRADIOL) VAGINAL RING [Suspect]
     Indication: CONTRACEPTION
     Dosage: 1 DF, 3 WEEKS ON, 1 WEEK OFF, VAGINAL
     Route: 067
     Dates: start: 20120416, end: 20120520
  2. METFORMIN (METFORMIN) [Concomitant]
  3. TRIGLIDE (FENOFIBRATE) [Concomitant]
  4. ZOLOFT (SERTRALINE HYDROCHLORIDE) [Concomitant]

REACTIONS (1)
  - Pulmonary embolism [None]
